FAERS Safety Report 17281998 (Version 1)
Quarter: 2020Q1

REPORT INFORMATION
  Report Type: Spontaneous
  Country: US (occurrence: US)
  Receive Date: 20200117
  Receipt Date: 20200117
  Transmission Date: 20200409
  Serious: Yes (Other)
  Sender: FDA-Public Use
  Company Number: US-ZYDUS-046442

PATIENT
  Age: 70 Year
  Sex: Female

DRUGS (2)
  1. TREPROSTINIL. [Concomitant]
     Active Substance: TREPROSTINIL
     Indication: PRODUCT USED FOR UNKNOWN INDICATION
     Route: 065
  2. BOSENTAN. [Suspect]
     Active Substance: BOSENTAN
     Indication: PULMONARY ARTERIAL HYPERTENSION
     Route: 048
     Dates: start: 20190605

REACTIONS (3)
  - Diarrhoea [Unknown]
  - Deafness [Unknown]
  - Arthritis [Unknown]

NARRATIVE: CASE EVENT DATE: 2019
